FAERS Safety Report 16131569 (Version 1)
Quarter: 2019Q1

REPORT INFORMATION
  Report Type: Spontaneous
  Country: FR (occurrence: FR)
  Receive Date: 20190329
  Receipt Date: 20190329
  Transmission Date: 20190418
  Serious: Yes (Other)
  Sender: FDA-Public Use
  Company Number: FR-AUROBINDO-AUR-APL-2019-015791

PATIENT

DRUGS (5)
  1. PANTOPRAZOLE MYLAN PHARMA [Suspect]
     Active Substance: PANTOPRAZOLE
     Indication: GASTROINTESTINAL DISORDER PROPHYLAXIS
     Dosage: 40 MILLIGRAM, ONCE A DAY
     Route: 048
     Dates: start: 20181220
  2. PREDNISOLONE. [Suspect]
     Active Substance: PREDNISOLONE
     Indication: LUNG NEOPLASM
     Dosage: UNK
     Route: 048
     Dates: start: 20181220, end: 20190207
  3. CALCIDOSE VITAMINE D [Suspect]
     Active Substance: CALCIUM\CHOLECALCIFEROL
     Indication: PROPHYLAXIS
     Route: 048
     Dates: start: 20181220, end: 20181230
  4. PARACETAMOL [Suspect]
     Active Substance: ACETAMINOPHEN
     Indication: PAIN
     Dosage: 4 GRAM, AS NECESSARY
     Route: 048
     Dates: start: 20181220
  5. ALECENSA [Suspect]
     Active Substance: ALECTINIB HYDROCHLORIDE
     Indication: LUNG NEOPLASM
     Dosage: 8 DOSAGE FORM, ONCE A DAY
     Route: 048
     Dates: start: 20181219

REACTIONS (4)
  - Myalgia [Recovered/Resolved]
  - Dermatitis acneiform [Not Recovered/Not Resolved]
  - Rash [Recovering/Resolving]
  - Pruritus [Recovering/Resolving]

NARRATIVE: CASE EVENT DATE: 20181227
